FAERS Safety Report 10038183 (Version 1)
Quarter: 2014Q1

REPORT INFORMATION
  Report Type: Spontaneous
  Country: US (occurrence: None)
  Receive Date: 20140306
  Receipt Date: 20140306
  Transmission Date: 20141002
  Serious: Yes (Other)
  Sender: FDA-Public Use
  Company Number: 163-21880-13073299

PATIENT
  Age: 62 Year
  Sex: Female
  Weight: 65.8 kg

DRUGS (4)
  1. REVLIMID [Suspect]
     Indication: PLASMA CELL MYELOMA
     Dosage: 25 MG, 1 IN 1 D, PO  12/ 2008 - UNKNOWN THERAPY DATES
     Route: 048
     Dates: start: 200812
  2. DEXAMETHASONE [Concomitant]
  3. IMODIUM A-D (LOPERAMIDE HYDROCHLORIDE) [Concomitant]
  4. WELCHOL (COLESVELAM HYDROCLORIDE) [Concomitant]

REACTIONS (1)
  - Thrombosis [None]
